FAERS Safety Report 22877459 (Version 7)
Quarter: 2024Q1

REPORT INFORMATION
  Report Type: Report from Study
  Country: TH (occurrence: TH)
  Receive Date: 20230829
  Receipt Date: 20240215
  Transmission Date: 20240410
  Serious: Yes (Hospitalization)
  Sender: FDA-Public Use
  Company Number: TH-002147023-NVSC2023TH185031

PATIENT
  Age: 8 Year
  Sex: Female
  Weight: 21.7 kg

DRUGS (10)
  1. PREDNISOLONE [Suspect]
     Active Substance: PREDNISOLONE
     Indication: Spinal muscular atrophy
     Dosage: CODE NOT BROKEN
     Route: 037
     Dates: start: 20230820
  2. PREDNISOLONE [Suspect]
     Active Substance: PREDNISOLONE
     Indication: Spinal muscular atrophy
     Dosage: UNK
     Route: 065
  3. ATRACURIUM [Concomitant]
     Active Substance: ATRACURIUM
     Indication: Anaesthesia
     Dosage: UNK
     Route: 065
     Dates: start: 20230821, end: 20230821
  4. ATROPINE [Concomitant]
     Active Substance: ATROPINE\ATROPINE SULFATE
     Indication: Anaesthesia
     Dosage: UNK
     Route: 065
     Dates: start: 20230821, end: 20230821
  5. CALCIUM CARBONATE [Concomitant]
     Active Substance: CALCIUM CARBONATE
     Indication: General physical condition
     Dosage: UNK
     Route: 065
     Dates: start: 20230626
  6. CHLORPHENIRAMINE [Concomitant]
     Active Substance: CHLORPHENIRAMINE
     Indication: Urticaria
     Dosage: UNK
     Route: 037
     Dates: start: 20230821, end: 20230821
  7. DESFLURANE [Concomitant]
     Active Substance: DESFLURANE
     Indication: Anaesthesia
     Dosage: UNK
     Route: 065
     Dates: start: 20230821, end: 20230821
  8. NEOSTIGMINE [Concomitant]
     Active Substance: NEOSTIGMINE
     Indication: Anaesthesia
     Dosage: UNK
     Route: 065
  9. THIOPENTAL [Concomitant]
     Active Substance: THIOPENTAL
     Indication: Anaesthesia
     Dosage: UNK
     Route: 065
     Dates: start: 20230821, end: 20230821
  10. VITAMIN D [Concomitant]
     Active Substance: VITAMIN D NOS
     Indication: General physical condition
     Dosage: UNK
     Route: 065
     Dates: start: 20230626

REACTIONS (4)
  - Pyrexia [Recovered/Resolved]
  - Cough [Recovered/Resolved]
  - Nausea [Recovered/Resolved]
  - Vomiting [Recovered/Resolved]

NARRATIVE: CASE EVENT DATE: 20230822
